FAERS Safety Report 15706834 (Version 2)
Quarter: 2019Q1

REPORT INFORMATION
  Report Type: Spontaneous
  Country: US (occurrence: US)
  Receive Date: 20181210
  Receipt Date: 20190125
  Transmission Date: 20190417
  Serious: No
  Sender: FDA-Public Use
  Company Number: US-ACTELION-A-US2018-171467

PATIENT
  Age: 57 Year
  Sex: Male

DRUGS (4)
  1. GLECAPREVIR [Concomitant]
     Active Substance: GLECAPREVIR
  2. ATORVASTATIN [Concomitant]
     Active Substance: ATORVASTATIN
  3. PIBRENTASVIR [Concomitant]
     Active Substance: PIBRENTASVIR
  4. OPSUMIT [Suspect]
     Active Substance: MACITENTAN
     Indication: PULMONARY ARTERIAL HYPERTENSION
     Dosage: 10 MG, QD
     Route: 048
     Dates: start: 20150413

REACTIONS (4)
  - Malaise [Unknown]
  - Blood triglycerides increased [Unknown]
  - Alanine aminotransferase increased [Unknown]
  - Back pain [Unknown]
